FAERS Safety Report 14590169 (Version 1)
Quarter: 2018Q1

REPORT INFORMATION
  Report Type: Spontaneous
  Country: US (occurrence: US)
  Receive Date: 20180302
  Receipt Date: 20180302
  Transmission Date: 20180509
  Serious: No
  Sender: FDA-Public Use
  Company Number: US-ROCHE-2079978

PATIENT
  Age: 44 Year
  Sex: Female
  Weight: 70.82 kg

DRUGS (2)
  1. OCREVUS [Suspect]
     Active Substance: OCRELIZUMAB
     Dosage: DUE TO HAVE SECOND OCREVUS INFUSION; ONGOING: YES
     Route: 042
  2. OCREVUS [Suspect]
     Active Substance: OCRELIZUMAB
     Indication: MULTIPLE SCLEROSIS
     Dosage: FIRST OCREVUS INFUSION; ONGOING: NO
     Route: 042
     Dates: start: 20180129, end: 20180129

REACTIONS (13)
  - Dyspnoea [Recovered/Resolved]
  - Malaise [Unknown]
  - Hiccups [Recovered/Resolved]
  - Throat irritation [Unknown]
  - Pyrexia [Recovered/Resolved]
  - Headache [Recovered/Resolved]
  - Viral infection [Unknown]
  - Oropharyngeal pain [Recovered/Resolved]
  - Cough [Not Recovered/Not Resolved]
  - Nasal congestion [Recovered/Resolved]
  - Fatigue [Unknown]
  - Chills [Recovered/Resolved]
  - Lower respiratory tract congestion [Not Recovered/Not Resolved]

NARRATIVE: CASE EVENT DATE: 20180129
